FAERS Safety Report 10256237 (Version 1)
Quarter: 2014Q2

REPORT INFORMATION
  Report Type: Spontaneous
  Country: AU (occurrence: AU)
  Receive Date: 20140624
  Receipt Date: 20140624
  Transmission Date: 20141212
  Serious: Yes (Hospitalization)
  Sender: FDA-Public Use
  Company Number: AU-BRISTOL-MYERS SQUIBB COMPANY-21034434

PATIENT
  Age: 73 Year
  Sex: Male

DRUGS (1)
  1. YERVOY [Suspect]
     Indication: MALIGNANT MELANOMA
     Dosage: EVERY 3 WEEKS X 4 DOSES,90MIN
     Route: 042

REACTIONS (4)
  - Colitis [Unknown]
  - Diarrhoea [Unknown]
  - Weight decreased [Unknown]
  - Faecal incontinence [Unknown]
